FAERS Safety Report 26182009 (Version 2)
Quarter: 2025Q4

REPORT INFORMATION
  Report Type: Report from Study
  Country: IN (occurrence: IN)
  Receive Date: 20251221
  Receipt Date: 20251224
  Transmission Date: 20260118
  Serious: Yes (Other)
  Sender: ROCHE
  Company Number: IN-ROCHE-3359733

PATIENT
  Age: 60 Year
  Sex: Male

DRUGS (2)
  1. TECENTRIQ [Suspect]
     Active Substance: ATEZOLIZUMAB
     Indication: Small cell lung cancer
     Dosage: PATIENT^S 2ND CYCLE OF TECENTRIQ WAS?SCHEDULED BY THE PHYSICIAN FOR THE 23RD DAY, 3RD CYCLE WAS SCHEDULED FOR THE 25TH DAY, THE 4TH CYCLE WAS SCHEDULED FOR?THE 23RD CYCLE AND 5TH CYCLE WAS SCHEDULED FOR 19TH DAY INSTEAD OF THE 21-DAY DURATION, WHICH IS AN OFF-LABEL USE OF THE?PRODUCT.?6TH CYCLE OF T
     Route: 042
     Dates: start: 20230311
  2. TECENTRIQ [Suspect]
     Active Substance: ATEZOLIZUMAB
     Indication: Neuroendocrine carcinoma
     Route: 042

REACTIONS (5)
  - Colitis [Unknown]
  - Anal fistula [Unknown]
  - Chest pain [Unknown]
  - Off label use [Unknown]
  - Off label use [Unknown]
